FAERS Safety Report 13923785 (Version 2)
Quarter: 2017Q4

REPORT INFORMATION
  Report Type: Spontaneous
  Country: US (occurrence: US)
  Receive Date: 20170831
  Receipt Date: 20171010
  Transmission Date: 20180320
  Serious: No
  Sender: FDA-Public Use
  Company Number: US-PFIZER INC-2017375067

PATIENT
  Age: 63 Year
  Sex: Female
  Weight: 56 kg

DRUGS (2)
  1. ESTRING [Suspect]
     Active Substance: ESTRADIOL
     Indication: VAGINAL LACERATION
  2. ESTRING [Suspect]
     Active Substance: ESTRADIOL
     Indication: VULVOVAGINAL DRYNESS
     Dosage: 2 MG (PER 90 DAYS)
     Route: 067

REACTIONS (2)
  - Vulvovaginal pain [Unknown]
  - Product use complaint [Not Recovered/Not Resolved]

NARRATIVE: CASE EVENT DATE: 201708
